FAERS Safety Report 7212251-1 (Version None)
Quarter: 2010Q4

REPORT INFORMATION
  Report Type: 
  Country: None (occurrence: None)
  Receive Date: 20101227
  Receipt Date: 20101215
  Transmission Date: 20110411
  Serious: Yes (Other)
  Sender: FDA-Public Use
  Company Number: 2010-4374

PATIENT
  Age: 13 Year
  Sex: Male

DRUGS (1)
  1. INCRELEX [Suspect]
     Indication: PRODUCT USED FOR UNKNOWN INDICATION

REACTIONS (1)
  - INTRACRANIAL PRESSURE INCREASED [None]
